FAERS Safety Report 8929213 (Version 2)
Quarter: 2012Q4

REPORT INFORMATION
  Report Type: Spontaneous
  Country: GB (occurrence: None)
  Receive Date: 20121119
  Receipt Date: 20121128
  Transmission Date: 20130627
  Serious: Yes (Other)
  Sender: FDA-Public Use
  Company Number: AUR-APL-2012-04815

PATIENT
  Age: 60 Year
  Sex: Female
  Weight: 68 kg

DRUGS (8)
  1. AMOXICILLIN (AMOXICILLIN) [Suspect]
     Indication: DRUG USE FOR UNKNOWN INDICATION
     Dates: start: 20121023
  2. CALCIUM CARBONATE (CALCIUM CARBONATE) [Concomitant]
  3. DIAZEPAM (DIAZEPAM) [Concomitant]
  4. DICLOFENAC SODIUM (DICLOFENAC SODIUM) [Concomitant]
  5. FERROUS FUMARATE (FERROUS FUMARATE) [Concomitant]
  6. FLUOXETINE (FLUOXETINE) [Concomitant]
  7. OMEPRAZOLE (OMEPRAZOLE) [Concomitant]
  8. PENTASA (MESALAZINE) [Concomitant]

REACTIONS (3)
  - Diarrhoea [None]
  - Malaise [None]
  - Vomiting [None]
